FAERS Safety Report 22319036 (Version 1)
Quarter: 2023Q2

REPORT INFORMATION
  Report Type: Spontaneous
  Country: US (occurrence: US)
  Receive Date: 20230515
  Receipt Date: 20230515
  Transmission Date: 20230721
  Serious: Yes (Other)
  Sender: FDA-Public Use
  Company Number: US-MYLANLABS-2023M1049731

PATIENT
  Age: 40 Year
  Sex: Male

DRUGS (3)
  1. HYDROCORTISONE [Suspect]
     Active Substance: HYDROCORTISONE
     Indication: Hyponatraemia
     Dosage: UNK, HIGH DOSE
     Route: 065
  2. HYDROCORTISONE [Suspect]
     Active Substance: HYDROCORTISONE
     Dosage: UNK (FIRST DOSE WAS REDUCED)
     Route: 065
  3. HYDROCORTISONE [Suspect]
     Active Substance: HYDROCORTISONE
     Dosage: UNK (DOSE INCREASED)
     Route: 065

REACTIONS (2)
  - Hyponatraemia [Recovering/Resolving]
  - Rebound effect [Recovering/Resolving]
